FAERS Safety Report 5917257-8 (Version None)
Quarter: 2008Q4

REPORT INFORMATION
  Report Type: 
  Country: None (occurrence: None)
  Receive Date: 20081009
  Receipt Date: 20081009
  Transmission Date: 20090506
  Serious: Yes (Hospitalization)
  Sender: FDA-Public Use
  Company Number: None

PATIENT
  Age: 45 Year
  Sex: Male

DRUGS (1)
  1. VERAPAMIL [Suspect]
     Indication: MIGRAINE PROPHYLAXIS
     Dosage: 240 MG EVERY DAY PO
     Route: 048
     Dates: start: 20080128, end: 20080202

REACTIONS (2)
  - CONDITION AGGRAVATED [None]
  - MYASTHENIA GRAVIS [None]
